FAERS Safety Report 15662482 (Version 1)
Quarter: 2018Q4

REPORT INFORMATION
  Report Type: Spontaneous
  Country: US (occurrence: US)
  Receive Date: 20181127
  Receipt Date: 20181127
  Transmission Date: 20190205
  Serious: No
  Sender: FDA-Public Use
  Company Number: US-AMGEN-USASP2018169536

PATIENT
  Age: 62 Year
  Sex: Female

DRUGS (1)
  1. AIMOVIG [Suspect]
     Active Substance: ERENUMAB-AOOE
     Indication: PRODUCT USED FOR UNKNOWN INDICATION
     Dosage: 70 MG, UNK
     Route: 065
     Dates: start: 201809

REACTIONS (5)
  - Influenza like illness [Unknown]
  - Migraine [Unknown]
  - Nausea [Not Recovered/Not Resolved]
  - Somnolence [Unknown]
  - Constipation [Unknown]

NARRATIVE: CASE EVENT DATE: 2018
